FAERS Safety Report 5051474-7 (Version None)
Quarter: 2006Q3

REPORT INFORMATION
  Report Type: 
  Country: None (occurrence: None)
  Receive Date: 20060711
  Receipt Date: 20060620
  Transmission Date: 20061208
  Serious: Yes (Hospitalization)
  Sender: FDA-Public Use
  Company Number: US200606004667

PATIENT
  Age: 71 Year
  Sex: Female

DRUGS (5)
  1. FORTEO [Suspect]
     Indication: OSTEOPOROSIS
     Dates: start: 20060201
  2. CARDIZEM [Concomitant]
  3. NITROGLYCERIN [Concomitant]
  4. QUININE SULFATE [Concomitant]
  5. NITROSTAT [Concomitant]

REACTIONS (4)
  - CONTUSION [None]
  - CORONARY ARTERY OCCLUSION [None]
  - INJECTION SITE HAEMORRHAGE [None]
  - MUSCLE SPASMS [None]
